FAERS Safety Report 6742336-5 (Version None)
Quarter: 2010Q2

REPORT INFORMATION
  Report Type: 
  Country: None (occurrence: None)
  Receive Date: 20100526
  Receipt Date: 20100107
  Transmission Date: 20101027
  Serious: Yes (Hospitalization)
  Sender: FDA-Public Use
  Company Number: KR-SANOFI-AVENTIS-2010SA029368

PATIENT
  Age: 40 Year
  Sex: Male

DRUGS (6)
  1. DOCETAXEL [Suspect]
     Indication: GASTRIC CANCER
     Route: 065
     Dates: start: 20090915, end: 20090915
  2. BEVACIZUMAB [Suspect]
     Indication: GASTRIC CANCER
     Route: 041
     Dates: start: 20080604, end: 20090915
  3. BEVACIZUMAB [Suspect]
     Route: 041
     Dates: start: 20080604, end: 20090915
  4. CAPECITABINE [Suspect]
     Indication: GASTRIC CANCER
     Route: 048
     Dates: start: 20080605, end: 20090915
  5. CAPECITABINE [Suspect]
     Route: 048
     Dates: start: 20080605, end: 20090915
  6. CISPLATIN [Suspect]
     Indication: GASTRIC CANCER
     Route: 041
     Dates: start: 20080604, end: 20090915

REACTIONS (3)
  - FEELING COLD [None]
  - MICROANGIOPATHIC HAEMOLYTIC ANAEMIA [None]
  - PYREXIA [None]
